FAERS Safety Report 26035573 (Version 1)
Quarter: 2025Q4

REPORT INFORMATION
  Report Type: Spontaneous
  Country: EU (occurrence: EU)
  Receive Date: 20251112
  Receipt Date: 20251112
  Transmission Date: 20260117
  Serious: Yes (Hospitalization, Other)
  Sender: ETHYPHARM
  Company Number: None

PATIENT
  Age: 40 Year
  Sex: Male

DRUGS (4)
  1. HEROIN [Suspect]
     Active Substance: DIAMORPHINE
     Dosage: 3 G /SEMAINE
     Route: 042
     Dates: start: 2007
  2. COCAINE [Suspect]
     Active Substance: COCAINE
     Route: 055
     Dates: start: 2007
  3. BUPRENORPHINE [Suspect]
     Active Substance: BUPRENORPHINE
     Dosage: 6 MG/J
     Route: 060
     Dates: start: 2014
  4. ALCOHOL [Suspect]
     Active Substance: ALCOHOL
     Dosage: 50 CL - 1 L DE BI?RE ? 5?/J
     Route: 048
     Dates: start: 1999

REACTIONS (2)
  - Substance use disorder [Not Recovered/Not Resolved]
  - Arthritis bacterial [Recovering/Resolving]
